FAERS Safety Report 8023760-X (Version None)
Quarter: 2012Q1

REPORT INFORMATION
  Report Type: 
  Country: None (occurrence: None)
  Receive Date: 20120105
  Receipt Date: 20111229
  Transmission Date: 20120608
  Serious: No
  Sender: FDA-Public Use
  Company Number: FR-ELI_LILLY_AND_COMPANY-FR201201000020

PATIENT
  Age: 64 Year
  Sex: Female

DRUGS (3)
  1. ZYPREXA [Suspect]
     Dosage: 10 MG, QD
     Route: 048
     Dates: start: 20111212
  2. PREVISCAN [Concomitant]
     Indication: THROMBOSIS PROPHYLAXIS
     Dosage: 1 DF, QD
     Route: 048
  3. ZYPREXA [Suspect]
     Indication: CYCLOTHYMIC DISORDER
     Dosage: 7.5 MG, QD
     Route: 048
     Dates: start: 20111201, end: 20111211

REACTIONS (1)
  - INTERNATIONAL NORMALISED RATIO ABNORMAL [None]
